FAERS Safety Report 10969332 (Version 2)
Quarter: 2015Q4

REPORT INFORMATION
  Report Type: Spontaneous
  Country: ES (occurrence: ES)
  Receive Date: 20150331
  Receipt Date: 20151116
  Transmission Date: 20160304
  Serious: Yes (Other)
  Sender: FDA-Public Use
  Company Number: ES-CIPLA LTD.-2015ES02463

PATIENT

DRUGS (10)
  1. CARBOPLATIN. [Suspect]
     Active Substance: CARBOPLATIN
     Indication: DISEASE RECURRENCE
     Dosage: 2 CYCLES
     Route: 065
  2. PACLITAXEL. [Suspect]
     Active Substance: PACLITAXEL
     Indication: OVARIAN CANCER
     Dosage: UNK
     Route: 065
     Dates: end: 201106
  3. PACLITAXEL. [Suspect]
     Active Substance: PACLITAXEL
     Indication: DISEASE RECURRENCE
     Dosage: 2 CYCLES
     Route: 065
  4. CETIRIZINE [Concomitant]
     Active Substance: CETIRIZINE HYDROCHLORIDE
     Dosage: 10 MG, UNK
     Route: 065
  5. RANITIDINE [Concomitant]
     Active Substance: RANITIDINE\RANITIDINE HYDROCHLORIDE
     Dosage: 150 MG, UNK
     Route: 065
  6. CARBOPLATIN. [Suspect]
     Active Substance: CARBOPLATIN
     Indication: METASTASIS
  7. MONTELUKAST [Concomitant]
     Active Substance: MONTELUKAST SODIUM
     Dosage: 10 MG, UNK
     Route: 065
  8. CARBOPLATIN. [Suspect]
     Active Substance: CARBOPLATIN
     Indication: OVARIAN CANCER
     Dosage: UNK
     Route: 065
     Dates: end: 201106
  9. PACLITAXEL. [Suspect]
     Active Substance: PACLITAXEL
     Indication: METASTASIS
  10. PREDNISONE. [Concomitant]
     Active Substance: PREDNISONE
     Dosage: 1 MG/KG, UNK
     Route: 065

REACTIONS (8)
  - Disease recurrence [Recovered/Resolved]
  - Dyspnoea [Unknown]
  - Hypersensitivity [Unknown]
  - Vomiting [Recovered/Resolved]
  - Hyperhidrosis [Unknown]
  - Loss of consciousness [Recovered/Resolved]
  - Metastasis [Recovered/Resolved]
  - Blood pressure decreased [Unknown]
